FAERS Safety Report 16912928 (Version 5)
Quarter: 2025Q1

REPORT INFORMATION
  Report Type: Report from Study
  Country: ES (occurrence: ES)
  Receive Date: 20191014
  Receipt Date: 20250321
  Transmission Date: 20250409
  Serious: Yes (Other)
  Sender: AUROBINDO
  Company Number: None

PATIENT
  Age: 10 Year
  Sex: Female

DRUGS (14)
  1. ACYCLOVIR [Suspect]
     Active Substance: ACYCLOVIR
     Indication: Prophylaxis
     Route: 065
  2. FLUDARABINE [Suspect]
     Active Substance: FLUDARABINE PHOSPHATE
     Indication: Bone marrow conditioning regimen
     Route: 065
  3. FLUDARABINE [Suspect]
     Active Substance: FLUDARABINE PHOSPHATE
     Indication: Stem cell transplant
  4. MYCOPHENOLIC ACID [Suspect]
     Active Substance: MYCOPHENOLIC ACID
     Indication: Immunosuppressant drug therapy
     Dosage: 45 MILLIGRAM/KILOGRAM, ONCE A DAY
     Route: 065
  5. MYCOPHENOLIC ACID [Suspect]
     Active Substance: MYCOPHENOLIC ACID
     Indication: Prophylaxis against graft versus host disease
  6. MYCOPHENOLIC ACID [Suspect]
     Active Substance: MYCOPHENOLIC ACID
     Indication: Stem cell transplant
  7. THIOTEPA [Suspect]
     Active Substance: THIOTEPA
     Indication: Stem cell transplant
     Dosage: 10 MILLIGRAM/SQ. METER, ONCE A DAY
     Route: 065
  8. THIOTEPA [Suspect]
     Active Substance: THIOTEPA
     Indication: Bone marrow conditioning regimen
  9. PREDNISONE [Suspect]
     Active Substance: PREDNISONE
     Indication: Immunosuppressant drug therapy
     Dosage: 2 MILLIGRAM/KILOGRAM, ONCE A DAY
     Route: 065
  10. GRANULOCYTE COLONY-STIMULATING FACTOR NOS [Concomitant]
     Active Substance: GRANULOCYTE COLONY-STIMULATING FACTOR NOS
     Indication: Product used for unknown indication
     Route: 065
  11. MICAFUNGIN [Concomitant]
     Active Substance: MICAFUNGIN SODIUM
     Indication: Prophylaxis
     Route: 065
  12. SULFAMETHOXAZOLE [Concomitant]
     Active Substance: SULFAMETHOXAZOLE
     Indication: Prophylaxis
     Route: 065
  13. SULFAMETHOXAZOLE [Concomitant]
     Active Substance: SULFAMETHOXAZOLE
     Route: 065
  14. TRIMETHOPRIM [Concomitant]
     Active Substance: TRIMETHOPRIM
     Indication: Prophylaxis
     Route: 065

REACTIONS (5)
  - Human herpesvirus 6 infection [Recovered/Resolved]
  - Acute graft versus host disease [Unknown]
  - Encephalitis viral [Recovered/Resolved]
  - Encephalitis herpes [Unknown]
  - Product use in unapproved indication [Unknown]
